FAERS Safety Report 13854298 (Version 1)
Quarter: 2017Q3

REPORT INFORMATION
  Report Type: Spontaneous
  Country: US (occurrence: US)
  Receive Date: 20170810
  Receipt Date: 20170810
  Transmission Date: 20171127
  Serious: No
  Sender: FDA-Public Use
  Company Number: None

PATIENT
  Sex: Male

DRUGS (1)
  1. VENLAFAXINE HCL [Suspect]
     Active Substance: VENLAFAXINE HYDROCHLORIDE

REACTIONS (8)
  - Incorrect dose administered [None]
  - Depression [None]
  - Drug dispensing error [None]
  - Social avoidant behaviour [None]
  - Decreased appetite [None]
  - Fatigue [None]
  - Hypersomnia [None]
  - Irritability [None]

NARRATIVE: CASE EVENT DATE: 2017
